FAERS Safety Report 8928893 (Version 1)
Quarter: 2012Q4

REPORT INFORMATION
  Report Type: 
  Country: DE (occurrence: DE)
  Receive Date: 20121127
  Receipt Date: 20121127
  Transmission Date: 20130627
  Serious: Yes (Hospitalization)
  Sender: FDA-Public Use
  Company Number: GXKR2012DE003556

PATIENT
  Age: 64 Year
  Sex: Male
  Weight: 100 kg

DRUGS (9)
  1. PARACETAMOL [Suspect]
  2. PROPOFOL [Suspect]
  3. ALFENTANIL [Concomitant]
  4. MORPHIN HCL [Concomitant]
  5. PIRITRAMIDE [Concomitant]
  6. METAMIZOLE [Concomitant]
  7. AKRINOR [Concomitant]
  8. FUROSEMIDE [Concomitant]
  9. CISATRACURIUM [Concomitant]

REACTIONS (4)
  - Rhabdomyolysis [Recovering/Resolving]
  - Muscle swelling [Recovering/Resolving]
  - Back pain [Not Recovered/Not Resolved]
  - Hypoaesthesia [Not Recovered/Not Resolved]
